FAERS Safety Report 15831619 (Version 2)
Quarter: 2019Q1

REPORT INFORMATION
  Report Type: Spontaneous
  Country: EC (occurrence: EC)
  Receive Date: 20190116
  Receipt Date: 20190222
  Transmission Date: 20190417
  Serious: Yes (Death, Other)
  Sender: FDA-Public Use
  Company Number: EC-UCBSA-2019001514

PATIENT
  Age: 41 Year
  Sex: Male

DRUGS (1)
  1. KEPPRA [Suspect]
     Active Substance: LEVETIRACETAM
     Indication: GENERALISED TONIC-CLONIC SEIZURE
     Dosage: 1000 MG, 3X/DAY (TID)
     Route: 048

REACTIONS (3)
  - Cardiac failure [Fatal]
  - Myocardial infarction [Fatal]
  - Off label use [Unknown]
